FAERS Safety Report 8475013-3 (Version None)
Quarter: 2012Q2

REPORT INFORMATION
  Report Type: 
  Country: None (occurrence: None)
  Receive Date: 20120628
  Receipt Date: 20120621
  Transmission Date: 20120825
  Serious: Yes (Hospitalization)
  Sender: FDA-Public Use
  Company Number: US-BAYER-2012-002950

PATIENT
  Age: 36 Year
  Sex: Female
  Weight: 125.17 kg

DRUGS (6)
  1. COLACE [Concomitant]
     Dosage: 100 MG, BID
  2. FELDENE [Concomitant]
     Dosage: UNK UNK, BID
     Route: 048
  3. YASMIN [Suspect]
     Indication: MENSTRUATION IRREGULAR
     Dosage: UNK
     Dates: start: 20051005, end: 20060120
  4. ACETAMINOPHEN [Concomitant]
     Indication: ARTHRALGIA
     Dosage: 2 TABLETS, PRN
     Dates: start: 20051231, end: 20060120
  5. DOXYCYCLINE [Concomitant]
     Dosage: 100 MG, BID
     Route: 048
     Dates: start: 20051107
  6. FERROUS SULFATE TAB [Concomitant]
     Indication: MICROCYTIC ANAEMIA
     Dosage: 325 MG, TID

REACTIONS (9)
  - PAIN [None]
  - MENSTRUATION IRREGULAR [None]
  - ANAEMIA [None]
  - INJURY [None]
  - GENERAL PHYSICAL HEALTH DETERIORATION [None]
  - DEEP VEIN THROMBOSIS [None]
  - EMOTIONAL DISTRESS [None]
  - PAIN IN EXTREMITY [None]
  - ANXIETY [None]
